FAERS Safety Report 9357287 (Version 2)
Quarter: 2013Q2

REPORT INFORMATION
  Report Type: Spontaneous
  Country: US (occurrence: None)
  Receive Date: 20130617
  Receipt Date: 20130626
  Transmission Date: 20140414
  Serious: Yes (Hospitalization)
  Sender: FDA-Public Use
  Company Number: UTC-033712

PATIENT
  Age: 53 Year
  Sex: Female
  Weight: 43.6 kg

DRUGS (3)
  1. TYVASO [Suspect]
     Indication: COR PULMONALE CHRONIC
     Dosage: 18 TO 54 MCG ( 4 IN 1 D)
     Route: 055
     Dates: start: 20130516, end: 201306
  2. TRACLEER (BOSENTAN) [Concomitant]
  3. REVATIO (SILDENAFIL CITRATE) [Concomitant]

REACTIONS (4)
  - Palpitations [None]
  - Oxygen saturation decreased [None]
  - Asthenia [None]
  - Fatigue [None]
